FAERS Safety Report 11752512 (Version 1)
Quarter: 2015Q4

REPORT INFORMATION
  Report Type: Spontaneous
  Country: SE (occurrence: SE)
  Receive Date: 20151119
  Receipt Date: 20151119
  Transmission Date: 20160304
  Serious: Yes (Death, Other)
  Sender: FDA-Public Use
  Company Number: SE-PFIZER INC-2015379273

PATIENT
  Sex: Male

DRUGS (4)
  1. SUNITINIB MALATE. [Suspect]
     Active Substance: SUNITINIB MALATE
     Indication: NEOPLASM MALIGNANT
     Dosage: 50 MG, 4:2
  2. SUNITINIB MALATE. [Suspect]
     Active Substance: SUNITINIB MALATE
     Dosage: 50 MG, 2:1
     Dates: start: 201004, end: 2011
  3. SUNITINIB MALATE. [Suspect]
     Active Substance: SUNITINIB MALATE
     Dosage: UNK
     Dates: start: 201108, end: 201112
  4. SUNITINIB MALATE. [Suspect]
     Active Substance: SUNITINIB MALATE
     Dosage: UNK
     Dates: start: 2012, end: 201302

REACTIONS (9)
  - Thyroid disorder [Unknown]
  - Neoplasm malignant [Not Recovered/Not Resolved]
  - Diarrhoea [Unknown]
  - Disease progression [Not Recovered/Not Resolved]
  - Hypertension [Unknown]
  - Stomatitis [Unknown]
  - Death [Fatal]
  - Blood count abnormal [Unknown]
  - Fatigue [Unknown]

NARRATIVE: CASE EVENT DATE: 2011
